FAERS Safety Report 14410778 (Version 2)
Quarter: 2018Q2

REPORT INFORMATION
  Report Type: Spontaneous
  Country: RU (occurrence: RU)
  Receive Date: 20180119
  Receipt Date: 20180418
  Transmission Date: 20180711
  Serious: Yes (Hospitalization)
  Sender: FDA-Public Use
  Company Number: RU-ASTRAZENECA-2018SE06876

PATIENT
  Age: 60 Year
  Sex: Male
  Weight: 55 kg

DRUGS (8)
  1. INSPRA [Concomitant]
     Active Substance: EPLERENONE
     Dates: start: 201701
  2. BRILINTA [Suspect]
     Active Substance: TICAGRELOR
     Indication: MYOCARDIAL INFARCTION
     Route: 048
     Dates: start: 201701, end: 201801
  3. ASPIRIN CARDIO [Concomitant]
     Active Substance: ASPIRIN
     Dates: start: 201701
  4. EPLERENONE. [Concomitant]
     Active Substance: EPLERENONE
     Dates: start: 201701
  5. ATORVASTATIN [Concomitant]
     Active Substance: ATORVASTATIN
     Dates: start: 201701
  6. NOLPAZA [Concomitant]
     Active Substance: PANTOPRAZOLE SODIUM
     Dates: start: 201701
  7. CARVEDILOL. [Concomitant]
     Active Substance: CARVEDILOL
     Dates: start: 201701
  8. LISINOPRIL. [Concomitant]
     Active Substance: LISINOPRIL
     Dates: start: 201701

REACTIONS (8)
  - Angina pectoris [Recovered/Resolved]
  - Weight decreased [Recovering/Resolving]
  - Intentional product misuse [Recovered/Resolved]
  - Off label use [Unknown]
  - Internal haemorrhage [Recovered/Resolved]
  - Product use issue [Unknown]
  - Gastric ulcer [Not Recovered/Not Resolved]
  - Epistaxis [Recovered/Resolved]

NARRATIVE: CASE EVENT DATE: 201702
